FAERS Safety Report 6394028-2 (Version None)
Quarter: 2009Q4

REPORT INFORMATION
  Report Type: 
  Country: None (occurrence: None)
  Receive Date: 20091008
  Receipt Date: 20090924
  Transmission Date: 20100525
  Serious: No
  Sender: FDA-Public Use
  Company Number: PHHY2009JP42108

PATIENT
  Age: 45 Year
  Sex: Female

DRUGS (5)
  1. VOLTAREN [Suspect]
     Indication: LUMBAR VERTEBRAL FRACTURE
     Dosage: 25 MG PER DAY
     Route: 054
  2. LOXONIN [Concomitant]
     Dosage: UNK
     Route: 048
  3. MYONAL [Concomitant]
     Dosage: UNK
     Route: 048
  4. PARIET [Concomitant]
     Dosage: UNK
     Route: 048
  5. ADOFEED [Concomitant]
     Dosage: UNK
     Route: 061

REACTIONS (2)
  - BREAST SWELLING [None]
  - NIPPLE PAIN [None]
